FAERS Safety Report 23544754 (Version 1)
Quarter: 2024Q1

REPORT INFORMATION
  Report Type: Spontaneous
  Country: US (occurrence: US)
  Receive Date: 20240220
  Receipt Date: 20240220
  Transmission Date: 20240410
  Serious: No
  Sender: FDA-Public Use
  Company Number: US-PFIZER INC-202400043035

PATIENT
  Age: 60 Year
  Sex: Female

DRUGS (1)
  1. IBRANCE [Suspect]
     Active Substance: PALBOCICLIB
     Dosage: TAKE 1 CAPSULE DAILY (ADMINISTER ON DAY 1 THROUGH 21, OF A 28 DAY TREATMENT CYCLE)
     Dates: end: 202402

REACTIONS (1)
  - Neoplasm progression [Not Recovered/Not Resolved]
